FAERS Safety Report 10328569 (Version 2)
Quarter: 2015Q1

REPORT INFORMATION
  Report Type: Spontaneous
  Country: US (occurrence: US)
  Receive Date: 20140721
  Receipt Date: 20150202
  Transmission Date: 20150720
  Serious: Yes (Life-Threatening, Hospitalization)
  Sender: FDA-Public Use
  Company Number: US-BAYER-2014-108704

PATIENT
  Age: 38 Year
  Sex: Female

DRUGS (3)
  1. CYTOTEC [Concomitant]
     Active Substance: MISOPROSTOL
  2. MIRENA [Suspect]
     Active Substance: LEVONORGESTREL
     Indication: CONTRACEPTION
     Dosage: 20 MCG/24HR, CONT
     Route: 015
     Dates: start: 2007, end: 2012
  3. MIRENA [Suspect]
     Active Substance: LEVONORGESTREL
     Indication: CONTRACEPTION
     Dosage: 20 MCG/24HR, CONT
     Route: 015
     Dates: start: 2012, end: 20130131

REACTIONS (9)
  - Medical device pain [None]
  - Medical device discomfort [None]
  - Scar [None]
  - Embedded device [None]
  - Injury [None]
  - Abdominal pain [None]
  - General physical health deterioration [None]
  - Procedural pain [None]
  - Infection [None]

NARRATIVE: CASE EVENT DATE: 20130131
